FAERS Safety Report 6244112-9 (Version None)
Quarter: 2009Q2

REPORT INFORMATION
  Report Type: 
  Country: None (occurrence: None)
  Receive Date: 20090623
  Receipt Date: 20090623
  Transmission Date: 20091009
  Serious: Yes (Hospitalization)
  Sender: FDA-Public Use
  Company Number: None

PATIENT
  Age: 66 Year
  Sex: Male
  Weight: 100.2 kg

DRUGS (2)
  1. NIFEDIPINE [Suspect]
     Indication: HYPERTENSION
     Dosage: 120 MG EVERY DAY PO
     Route: 048
     Dates: start: 20090305, end: 20090311
  2. NAPROXEN [Suspect]
     Indication: PAIN

REACTIONS (1)
  - RENAL FAILURE ACUTE [None]
